FAERS Safety Report 4945360-8 (Version None)
Quarter: 2006Q1

REPORT INFORMATION
  Report Type: 
  Country: None (occurrence: None)
  Receive Date: 20060315
  Receipt Date: 20060315
  Transmission Date: 20060701
  Serious: Yes (Hospitalization)
  Sender: FDA-Public Use
  Company Number: None

PATIENT
  Age: 54 Year
  Sex: Male
  Weight: 72 kg

DRUGS (2)
  1. SERTRALINE [Suspect]
     Indication: DEPRESSION
     Dosage: 200MG AM + 150MG QHS
     Dates: start: 20050920, end: 20051206
  2. SERTRALINE [Suspect]
     Indication: GENERALISED ANXIETY DISORDER
     Dosage: 200MG AM + 150MG QHS
     Dates: start: 20050920, end: 20051206

REACTIONS (5)
  - HYPERHIDROSIS [None]
  - INCORRECT DOSE ADMINISTERED [None]
  - MEDICATION ERROR [None]
  - NAUSEA [None]
  - SEROTONIN SYNDROME [None]
